FAERS Safety Report 13023074 (Version 5)
Quarter: 2017Q2

REPORT INFORMATION
  Report Type: Spontaneous
  Country: CN (occurrence: CN)
  Receive Date: 20161213
  Receipt Date: 20170605
  Transmission Date: 20170830
  Serious: Yes (Other)
  Sender: FDA-Public Use
  Company Number: CN-PFIZER INC-2016577964

PATIENT
  Sex: Female

DRUGS (7)
  1. SOLU-MEDROL [Suspect]
     Active Substance: METHYLPREDNISOLONE SODIUM SUCCINATE
     Indication: TOXICITY TO VARIOUS AGENTS
     Dosage: UNK
     Route: 041
     Dates: start: 20140408, end: 20140417
  2. SOLU-MEDROL [Suspect]
     Active Substance: METHYLPREDNISOLONE SODIUM SUCCINATE
     Dosage: UNK
     Route: 041
     Dates: start: 201610
  3. SOLU-MEDROL [Suspect]
     Active Substance: METHYLPREDNISOLONE SODIUM SUCCINATE
     Dosage: 120 MG, UNK
     Route: 041
  4. SOLU-MEDROL [Suspect]
     Active Substance: METHYLPREDNISOLONE SODIUM SUCCINATE
     Dosage: 160 MG, UNK
     Route: 041
  5. SOLU-MEDROL [Suspect]
     Active Substance: METHYLPREDNISOLONE SODIUM SUCCINATE
     Dosage: 80 MG, UNK
     Route: 041
  6. SOLU-MEDROL [Suspect]
     Active Substance: METHYLPREDNISOLONE SODIUM SUCCINATE
     Dosage: 200 MG, UNK
     Route: 041
  7. SOLU-MEDROL [Suspect]
     Active Substance: METHYLPREDNISOLONE SODIUM SUCCINATE
     Dosage: 40 MG, UNK
     Route: 041

REACTIONS (28)
  - Tinnitus [Recovering/Resolving]
  - Toothache [Unknown]
  - Depression [Recovering/Resolving]
  - Insomnia [Recovering/Resolving]
  - Arthralgia [Unknown]
  - Asthenia [Unknown]
  - Nausea [Recovering/Resolving]
  - Pyrexia [Recovering/Resolving]
  - Decreased appetite [Unknown]
  - Cough [Recovering/Resolving]
  - Eye pain [Unknown]
  - Menstruation irregular [Recovering/Resolving]
  - Skin disorder [Recovering/Resolving]
  - Cerebral haemorrhage [Unknown]
  - Headache [Recovering/Resolving]
  - Peripheral swelling [Not Recovered/Not Resolved]
  - Palpitations [Not Recovered/Not Resolved]
  - Dry mouth [Unknown]
  - Vomiting [Unknown]
  - Anxiety [Recovering/Resolving]
  - Infection [Recovering/Resolving]
  - Abdominal pain [Recovering/Resolving]
  - Arrhythmia [Unknown]
  - Hypertension [Unknown]
  - Muscle twitching [Unknown]
  - Xerophthalmia [Not Recovered/Not Resolved]
  - Periodontitis [Recovering/Resolving]
  - Joint effusion [Not Recovered/Not Resolved]
